FAERS Safety Report 16081206 (Version 1)
Quarter: 2019Q1

REPORT INFORMATION
  Report Type: Report from Study
  Country: US (occurrence: US)
  Receive Date: 20190316
  Receipt Date: 20190316
  Transmission Date: 20190418
  Serious: Yes (Hospitalization)
  Sender: FDA-Public Use
  Company Number: PHEH2019US011272

PATIENT
  Age: 65 Year
  Sex: Male
  Weight: 107 kg

DRUGS (1)
  1. ENTRESTO [Suspect]
     Active Substance: SACUBITRIL\VALSARTAN
     Indication: HYPERTENSION
     Dosage: 1 DF (SACUBITRIL 49 MG AND VALSARTAN 51 MG), BID
     Route: 048
     Dates: start: 20170525

REACTIONS (2)
  - Sickle cell anaemia [Recovering/Resolving]
  - Sepsis [Recovered/Resolved]

NARRATIVE: CASE EVENT DATE: 20190103
